FAERS Safety Report 6823039-5 (Version None)
Quarter: 2010Q3

REPORT INFORMATION
  Report Type: 
  Country: None (occurrence: None)
  Receive Date: 20100708
  Receipt Date: 20100629
  Transmission Date: 20110219
  Serious: Yes (Death, Life-Threatening, Hospitalization)
  Sender: FDA-Public Use
  Company Number: B0660589A

PATIENT
  Sex: Male

DRUGS (10)
  1. SALMETEROL/FLUTICASONE PROPIONATE 50/250UG [Suspect]
     Indication: CHRONIC OBSTRUCTIVE PULMONARY DISEASE
     Dosage: 500MCG PER DAY
     Route: 055
     Dates: start: 20091207, end: 20100607
  2. GASMOTIN [Suspect]
     Dosage: 10MG PER DAY
     Route: 048
     Dates: end: 20100607
  3. CHINESE MEDICINE [Suspect]
     Dosage: 5G PER DAY
     Route: 048
     Dates: end: 20100607
  4. VESICARE [Suspect]
     Dosage: 10MG PER DAY
     Route: 048
     Dates: start: 20100118, end: 20100607
  5. GOODMIN [Suspect]
     Dosage: .25MG PER DAY
     Route: 048
     Dates: end: 20100607
  6. SPIRIVA [Suspect]
     Indication: CHRONIC OBSTRUCTIVE PULMONARY DISEASE
     Dosage: 18MCG PER DAY
     Route: 055
     Dates: end: 20100607
  7. ASPIRIN DIALUMINATE [Suspect]
     Dosage: 81MG PER DAY
     Route: 048
     Dates: end: 20100607
  8. PANTOSIN [Suspect]
     Dosage: 2G PER DAY
     Route: 048
     Dates: end: 20100607
  9. SENNOSIDE [Suspect]
     Route: 048
  10. SOLDEM [Concomitant]
     Dosage: 500ML PER DAY
     Route: 042
     Dates: start: 20100101, end: 20100101

REACTIONS (17)
  - BLOOD CREATININE INCREASED [None]
  - BLOOD UREA INCREASED [None]
  - BLOOD URIC ACID INCREASED [None]
  - C-REACTIVE PROTEIN INCREASED [None]
  - CARDIO-RESPIRATORY ARREST [None]
  - CHOKING SENSATION [None]
  - CHRONIC RESPIRATORY FAILURE [None]
  - COUGH [None]
  - DECREASED APPETITE [None]
  - DEHYDRATION [None]
  - DYSPNOEA [None]
  - FEMORAL NECK FRACTURE [None]
  - OXYGEN SATURATION DECREASED [None]
  - PAIN [None]
  - PAINFUL RESPIRATION [None]
  - PNEUMONIA BACTERIAL [None]
  - WHITE BLOOD CELL COUNT INCREASED [None]
